FAERS Safety Report 10252256 (Version 2)
Quarter: 2016Q3

REPORT INFORMATION
  Report Type: Spontaneous
  Country: US (occurrence: US)
  Receive Date: 20140623
  Receipt Date: 20160705
  Transmission Date: 20161109
  Serious: Yes (Death, Life-Threatening, Hospitalization, Other)
  Sender: FDA-Public Use
  Company Number: US-ROCHE-1418176

PATIENT
  Age: 68 Year
  Sex: Female

DRUGS (21)
  1. CELLCEPT [Suspect]
     Active Substance: MYCOPHENOLATE MOFETIL\MYCOPHENOLATE MOFETIL HYDROCHLORIDE
     Indication: ARTHRALGIA
     Dosage: 500MG QD X 3 DAYS, 500MG BID X 3 WEEK, 1000MG BID
     Route: 048
  2. TRAMADOL HCL [Concomitant]
     Active Substance: TRAMADOL HYDROCHLORIDE
  3. FLOLAN [Suspect]
     Active Substance: EPOPROSTENOL SODIUM
     Dosage: 28 NG/KG/MIN
     Route: 042
     Dates: start: 20100222
  4. PREDNISONE. [Concomitant]
     Active Substance: PREDNISONE
  5. BABY ASPIRIN [Concomitant]
     Active Substance: ASPIRIN
  6. PLAQUENIL [Suspect]
     Active Substance: HYDROXYCHLOROQUINE SULFATE
     Indication: PRODUCT USED FOR UNKNOWN INDICATION
     Route: 065
  7. OCUVITE PRESERVISION [Concomitant]
  8. ASPIRIN. [Concomitant]
     Active Substance: ASPIRIN
  9. FLOLAN [Suspect]
     Active Substance: EPOPROSTENOL SODIUM
     Indication: PULMONARY HYPERTENSION
     Dosage: 28 NG/KG/MIN
     Route: 042
     Dates: start: 20120201
  10. LASIX [Concomitant]
     Active Substance: FUROSEMIDE
  11. FLOLAN [Suspect]
     Active Substance: EPOPROSTENOL SODIUM
     Indication: COR PULMONALE CHRONIC
     Dosage: 28 NG/KG/MIN
     Route: 065
     Dates: start: 20100525
  12. CLARITIN [Concomitant]
     Active Substance: LORATADINE
  13. POTASSIUM CHLORIDE. [Concomitant]
     Active Substance: POTASSIUM CHLORIDE
  14. ADCIRCA [Concomitant]
     Active Substance: TADALAFIL
  15. TRACLEER [Concomitant]
     Active Substance: BOSENTAN
  16. EPOPROSTENOL SODIUM. [Concomitant]
     Active Substance: EPOPROSTENOL SODIUM
  17. FLUTICASONE PROPIONATE. [Concomitant]
     Active Substance: FLUTICASONE PROPIONATE
  18. TRIAMCINOLONE ACETONIDE. [Concomitant]
     Active Substance: TRIAMCINOLONE ACETONIDE
  19. ZOLPIDEM TARTRATE. [Concomitant]
     Active Substance: ZOLPIDEM TARTRATE
  20. FLOLAN [Suspect]
     Active Substance: EPOPROSTENOL SODIUM
     Indication: POLYMYOSITIS
     Dosage: 28 NG/KG/MIN
     Route: 042
     Dates: start: 20110314
  21. IMURAN [Concomitant]
     Active Substance: AZATHIOPRINE

REACTIONS (22)
  - Ejection fraction decreased [Recovering/Resolving]
  - Hypoaesthesia [Recovered/Resolved]
  - Loss of consciousness [Recovered/Resolved]
  - Liver function test increased [Unknown]
  - Tachycardia [Unknown]
  - Diarrhoea [Unknown]
  - Ear infection [Unknown]
  - Herpes zoster [Unknown]
  - Death [Fatal]
  - Blood bilirubin increased [Unknown]
  - Catheter site discharge [Unknown]
  - Syncope [Unknown]
  - Asthenia [Recovered/Resolved]
  - Catheterisation cardiac [Unknown]
  - Complication associated with device [Unknown]
  - Left ventricular dysfunction [Recovering/Resolving]
  - Upper respiratory tract infection [Unknown]
  - Flushing [Unknown]
  - Dizziness [Unknown]
  - Hypertension [Unknown]
  - Oedema peripheral [Unknown]
  - Right ventricular heave [Unknown]

NARRATIVE: CASE EVENT DATE: 201104
